FAERS Safety Report 6541109-6 (Version None)
Quarter: 2010Q1

REPORT INFORMATION
  Report Type: 
  Country: None (occurrence: None)
  Receive Date: 20100118
  Receipt Date: 20091216
  Transmission Date: 20100710
  Serious: No
  Sender: FDA-Public Use
  Company Number: US-BAYER-200943371NA

PATIENT
  Sex: Female
  Weight: 113 kg

DRUGS (2)
  1. ULTRAVIST 300 [Suspect]
     Indication: COMPUTERISED TOMOGRAM ABDOMEN
     Dosage: AS USED: 145 ML  UNIT DOSE: 150 ML
     Route: 042
     Dates: start: 20091216, end: 20091216
  2. METOPROLOL [Concomitant]

REACTIONS (2)
  - PRURITUS [None]
  - URTICARIA [None]
